FAERS Safety Report 12495608 (Version 1)
Quarter: 2016Q2

REPORT INFORMATION
  Report Type: Spontaneous
  Country: AT (occurrence: AT)
  Receive Date: 20160624
  Receipt Date: 20160624
  Transmission Date: 20160815
  Serious: Yes (Other)
  Sender: FDA-Public Use
  Company Number: AT-PFIZER INC-2016302945

PATIENT
  Age: 26 Year
  Sex: Female
  Weight: 46.1 kg

DRUGS (34)
  1. TEMESTA [Suspect]
     Active Substance: LORAZEPAM
     Dosage: 1 MG, UNK
     Dates: start: 20160321, end: 20160321
  2. ZYPREXA [Suspect]
     Active Substance: OLANZAPINE
     Dosage: 7.5 MG, UNK
     Dates: start: 20160224, end: 20160226
  3. CIPRALEX [Concomitant]
     Active Substance: ESCITALOPRAM OXALATE
     Dosage: 5 MG, UNK
     Dates: start: 20160209, end: 20160209
  4. TEMESTA [Suspect]
     Active Substance: LORAZEPAM
     Dosage: 7.5 MG, UNK
     Dates: start: 20160218, end: 20160220
  5. TEMESTA [Suspect]
     Active Substance: LORAZEPAM
     Dosage: 2 MG, UNK
     Dates: start: 20160317, end: 20160318
  6. SEROPRAM [Suspect]
     Active Substance: CITALOPRAM HYDROBROMIDE
     Dosage: 20 MG, UNK
     Dates: start: 20160220, end: 20160222
  7. LOVENOX [Concomitant]
     Active Substance: ENOXAPARIN SODIUM
     Dosage: 40 MG, UNK
     Route: 058
     Dates: start: 20160209, end: 20160210
  8. TEMESTA [Suspect]
     Active Substance: LORAZEPAM
     Dosage: 5 MG, UNK
     Dates: start: 20160209, end: 20160214
  9. TEMESTA [Suspect]
     Active Substance: LORAZEPAM
     Dosage: 3.5 MG, UNK
     Dates: start: 20160224, end: 20160315
  10. TEMESTA [Suspect]
     Active Substance: LORAZEPAM
     Dosage: 1.5 MG, UNK
     Dates: start: 20160319, end: 20160320
  11. LEPONEX [Suspect]
     Active Substance: CLOZAPINE
     Dosage: 300 MG, UNK
     Dates: start: 20160305
  12. ZYPREXA [Suspect]
     Active Substance: OLANZAPINE
     Dosage: 10 MG, UNK
     Dates: start: 20160208, end: 20160208
  13. SEROQUEL [Concomitant]
     Active Substance: QUETIAPINE FUMARATE
     Dosage: 50 MG, UNK
     Dates: start: 20160206, end: 20160206
  14. TEMESTA [Suspect]
     Active Substance: LORAZEPAM
     Dosage: 4 MG, UNK
     Dates: start: 20160223, end: 20160223
  15. TEMESTA [Suspect]
     Active Substance: LORAZEPAM
     Dosage: 0.5 MG, UNK
     Dates: start: 20160322, end: 20160322
  16. LEPONEX [Suspect]
     Active Substance: CLOZAPINE
     Dosage: 200 MG, UNK
     Dates: start: 20160219, end: 20160303
  17. CIPRALEX [Concomitant]
     Active Substance: ESCITALOPRAM OXALATE
     Dosage: 5 MG, UNK
     Dates: start: 20160308
  18. NEXIUM [Concomitant]
     Active Substance: ESOMEPRAZOLE MAGNESIUM
     Dosage: 20 MG, UNK
     Dates: start: 20160209, end: 20160215
  19. RIVOTRIL [Concomitant]
     Active Substance: CLONAZEPAM
     Dosage: 1 MG, UNK
     Dates: start: 20160215
  20. TEMESTA [Suspect]
     Active Substance: LORAZEPAM
     Dosage: 3.75 MG, UNK
     Dates: start: 20160215, end: 20160216
  21. TEMESTA [Suspect]
     Active Substance: LORAZEPAM
     Dosage: 6.75 MG, UNK
     Dates: start: 20160217, end: 20160217
  22. LEPONEX [Suspect]
     Active Substance: CLOZAPINE
     Dosage: 75 MG, UNK
     Dates: start: 20160218, end: 20160218
  23. LEPONEX [Suspect]
     Active Substance: CLOZAPINE
     Dosage: 250 MG, UNK
     Dates: start: 20160304, end: 20160304
  24. SEROQUEL XR [Concomitant]
     Active Substance: QUETIAPINE FUMARATE
     Dosage: 50 MG, UNK
     Dates: start: 20160206, end: 20160207
  25. TEMESTA [Suspect]
     Active Substance: LORAZEPAM
     Dosage: 2.5 MG, UNK
     Dates: start: 20160206, end: 20160208
  26. TEMESTA [Suspect]
     Active Substance: LORAZEPAM
     Dosage: 3.25 MG, UNK
     Dates: start: 20160222, end: 20160222
  27. TEMESTA [Suspect]
     Active Substance: LORAZEPAM
     Dosage: 3 MG, UNK
     Dates: start: 20160316, end: 20160316
  28. ZYPREXA [Suspect]
     Active Substance: OLANZAPINE
     Dosage: 30 MG, UNK
     Dates: start: 20160209, end: 20160211
  29. ZYPREXA [Suspect]
     Active Substance: OLANZAPINE
     Dosage: 22.5 MG, UNK
     Dates: start: 20160212, end: 20160218
  30. SEROPRAM [Suspect]
     Active Substance: CITALOPRAM HYDROBROMIDE
     Dosage: 20 MG, UNK, FOR MONTHS
     Dates: end: 201601
  31. SEROQUEL [Concomitant]
     Active Substance: QUETIAPINE FUMARATE
     Dosage: 75 MG, UNK
     Dates: start: 20160207, end: 20160207
  32. TEMESTA [Suspect]
     Active Substance: LORAZEPAM
     Dosage: 5 MG, UNK
     Dates: start: 20160221, end: 20160221
  33. ZYPREXA [Suspect]
     Active Substance: OLANZAPINE
     Dosage: 15 MG, UNK
     Dates: start: 20160219, end: 20160223
  34. CIPRALEX [Concomitant]
     Active Substance: ESCITALOPRAM OXALATE
     Dosage: 10 MG, UNK
     Dates: start: 20160223, end: 20160307

REACTIONS (1)
  - Constipation [Recovered/Resolved]

NARRATIVE: CASE EVENT DATE: 20160221
